FAERS Safety Report 14282657 (Version 2)
Quarter: 2018Q1

REPORT INFORMATION
  Report Type: Spontaneous
  Country: US (occurrence: US)
  Receive Date: 20171213
  Receipt Date: 20180330
  Transmission Date: 20180508
  Serious: Yes (Hospitalization, Other)
  Sender: FDA-Public Use
  Company Number: US-SA-2017SA246195

PATIENT
  Age: 54 Year
  Sex: Female
  Weight: 60.6 kg

DRUGS (7)
  1. LEMTRADA [Suspect]
     Active Substance: ALEMTUZUMAB
     Indication: MULTIPLE SCLEROSIS
     Route: 041
     Dates: start: 20160711, end: 20160715
  2. ACYCLOVIR. [Concomitant]
     Active Substance: ACYCLOVIR
     Route: 065
     Dates: start: 20170711
  3. DEXAMETHASONE. [Concomitant]
     Active Substance: DEXAMETHASONE
     Route: 048
  4. OMEGA-3 ACIDS [Concomitant]
     Active Substance: OMEGA-3 FATTY ACIDS
     Route: 065
  5. GABAPENTIN. [Concomitant]
     Active Substance: GABAPENTIN
     Route: 048
     Dates: start: 201701
  6. AMPYRA [Concomitant]
     Active Substance: DALFAMPRIDINE
     Route: 065
  7. HYDROCHLOROTHIAZIDE. [Concomitant]
     Active Substance: HYDROCHLOROTHIAZIDE
     Route: 048

REACTIONS (24)
  - Glossodynia [Recovered/Resolved]
  - Tongue pigmentation [Recovered/Resolved]
  - Contusion [Unknown]
  - Bradycardia [Unknown]
  - Mean platelet volume increased [Not Recovered/Not Resolved]
  - Immune thrombocytopenic purpura [Unknown]
  - Mean cell haemoglobin decreased [Not Recovered/Not Resolved]
  - Myocardial infarction [Unknown]
  - White blood cell count decreased [Not Recovered/Not Resolved]
  - Platelet count decreased [Not Recovered/Not Resolved]
  - Haemoglobin decreased [Recovered/Resolved]
  - White blood cell count increased [Not Recovered/Not Resolved]
  - Monoparesis [Not Recovered/Not Resolved]
  - Hypertension [Unknown]
  - Hyperlipidaemia [Not Recovered/Not Resolved]
  - Neutrophil count decreased [Not Recovered/Not Resolved]
  - Haematocrit decreased [Not Recovered/Not Resolved]
  - Lymphocyte count decreased [Not Recovered/Not Resolved]
  - Leukopenia [Recovered/Resolved]
  - Oropharyngeal pain [Unknown]
  - Blood glucose increased [Not Recovered/Not Resolved]
  - Memory impairment [Unknown]
  - Neuralgia [Unknown]
  - Mean cell haemoglobin concentration decreased [Not Recovered/Not Resolved]

NARRATIVE: CASE EVENT DATE: 20161005
